FAERS Safety Report 8478202-7 (Version None)
Quarter: 2012Q2

REPORT INFORMATION
  Report Type: 
  Country: None (occurrence: None)
  Receive Date: 20120629
  Receipt Date: 20120619
  Transmission Date: 20120825
  Serious: Yes (Other)
  Sender: FDA-Public Use
  Company Number: ES-ELI_LILLY_AND_COMPANY-ES201206006408

PATIENT
  Age: 76 Year
  Sex: Female

DRUGS (4)
  1. CALCIUM [Concomitant]
  2. VITAMIN D [Concomitant]
  3. FORTEO [Suspect]
     Dosage: UNK
     Dates: start: 20111201
  4. VITAMIN B-12 [Concomitant]
     Indication: ANAEMIA MEGALOBLASTIC

REACTIONS (1)
  - MULTIPLE MYELOMA [None]
